FAERS Safety Report 6360960-9 (Version None)
Quarter: 2009Q3

REPORT INFORMATION
  Report Type: 
  Country: None (occurrence: None)
  Receive Date: 20090918
  Receipt Date: 20090916
  Transmission Date: 20100115
  Serious: Yes (Hospitalization)
  Sender: FDA-Public Use
  Company Number: JP-BRISTOL-MYERS SQUIBB COMPANY-14716245

PATIENT
  Age: 78 Year
  Sex: Male
  Weight: 46 kg

DRUGS (7)
  1. TAXOL [Suspect]
     Indication: GASTRIC CANCER RECURRENT
     Route: 041
     Dates: start: 20090617
  2. TS-1 [Suspect]
     Indication: GASTRIC CANCER RECURRENT
     Dosage: CAPS
     Route: 048
     Dates: start: 20090317, end: 20090707
  3. DEXAMETHASONE SODIUM PHOSPHATE [Concomitant]
     Dosage: INJ
     Route: 041
     Dates: start: 20090617, end: 20090701
  4. CHLORPHENIRAMINE MALEATE [Concomitant]
     Dosage: INJ
     Route: 041
     Dates: start: 20090617, end: 20090701
  5. RANITIDINE HCL [Concomitant]
     Dosage: INJ
     Route: 041
     Dates: start: 20090617, end: 20090701
  6. MAGNESIUM OXIDE [Concomitant]
     Indication: CONSTIPATION
     Dosage: TAB
     Route: 048
     Dates: start: 20090630
  7. SENNOSIDE A+B [Concomitant]
     Indication: CONSTIPATION
     Dosage: TAB
     Route: 048
     Dates: start: 20090630

REACTIONS (1)
  - HENOCH-SCHONLEIN PURPURA [None]
